FAERS Safety Report 6736453-3 (Version None)
Quarter: 2010Q2

REPORT INFORMATION
  Report Type: 
  Country: None (occurrence: None)
  Receive Date: 20100521
  Receipt Date: 20100518
  Transmission Date: 20101027
  Serious: Yes (Other)
  Sender: FDA-Public Use
  Company Number: JP-SANOFI-AVENTIS-2010SA026543

PATIENT
  Age: 68 Year
  Sex: Female

DRUGS (3)
  1. AMARYL [Suspect]
     Indication: TYPE 2 DIABETES MELLITUS
     Route: 048
  2. PHENYTOIN [Suspect]
  3. PIOGLITAZONE [Concomitant]
     Indication: TYPE 2 DIABETES MELLITUS

REACTIONS (1)
  - DRUG RASH WITH EOSINOPHILIA AND SYSTEMIC SYMPTOMS [None]
